FAERS Safety Report 19849918 (Version 1)
Quarter: 2021Q3

REPORT INFORMATION
  Report Type: Spontaneous
  Country: US (occurrence: US)
  Receive Date: 20210917
  Receipt Date: 20210917
  Transmission Date: 20211014
  Serious: No
  Sender: FDA-Public Use
  Company Number: US-CATALYST PHARMACEUTICALS, INC-2021CAT00378

PATIENT
  Age: 61 Year
  Sex: Female
  Weight: 82.55 kg

DRUGS (5)
  1. XIIDRA [Concomitant]
     Active Substance: LIFITEGRAST
  2. FIRDAPSE [Suspect]
     Active Substance: AMIFAMPRIDINE PHOSPHATE
     Indication: MYASTHENIC SYNDROME
     Dosage: 15?20 MG, 4X/DAY
     Route: 048
     Dates: start: 20190326
  3. TYLENOL EXTRA STRENGTH [Concomitant]
     Active Substance: ACETAMINOPHEN
  4. SIMVASTATIN. [Concomitant]
     Active Substance: SIMVASTATIN
  5. DESVENLAFAXINE XR [Concomitant]

REACTIONS (2)
  - Headache [Not Recovered/Not Resolved]
  - Stress [Unknown]

NARRATIVE: CASE EVENT DATE: 202108
